FAERS Safety Report 17813844 (Version 1)
Quarter: 2020Q2

REPORT INFORMATION
  Report Type: Spontaneous
  Country: DE (occurrence: DE)
  Receive Date: 20200521
  Receipt Date: 20200521
  Transmission Date: 20200714
  Serious: Yes (Life-Threatening, Hospitalization)
  Sender: FDA-Public Use
  Company Number: DE-JNJFOC-20200518177

PATIENT
  Age: 90 Year
  Sex: Male
  Weight: 58 kg

DRUGS (1)
  1. DARZALEX [Suspect]
     Active Substance: DARATUMUMAB
     Indication: PLASMA CELL MYELOMA
     Route: 041

REACTIONS (7)
  - Platelet count decreased [Recovering/Resolving]
  - Sopor [Recovering/Resolving]
  - White blood cell count decreased [Not Recovered/Not Resolved]
  - Blood lactate dehydrogenase increased [Recovering/Resolving]
  - Haemoglobin decreased [Recovering/Resolving]
  - Pancytopenia [Not Recovered/Not Resolved]
  - Haemolysis [Recovering/Resolving]

NARRATIVE: CASE EVENT DATE: 20200409
